FAERS Safety Report 6057036-7 (Version None)
Quarter: 2009Q1

REPORT INFORMATION
  Report Type: 
  Country: None (occurrence: None)
  Receive Date: 20090129
  Receipt Date: 20090112
  Transmission Date: 20090719
  Serious: Yes (Other)
  Sender: FDA-Public Use
  Company Number: PHHY2009IE01259

PATIENT
  Age: 2 Year
  Sex: Female

DRUGS (1)
  1. CLOZARIL [Suspect]
     Dosage: ONE CLOZARIL TABLET (STRENGTH UNKNOWN, LIKELY TO BE 100MG)
     Route: 048
     Dates: start: 20090112

REACTIONS (1)
  - ACCIDENTAL DRUG INTAKE BY CHILD [None]
